FAERS Safety Report 13727074 (Version 1)
Quarter: 2017Q3

REPORT INFORMATION
  Report Type: Spontaneous
  Country: GB (occurrence: GB)
  Receive Date: 20170707
  Receipt Date: 20170707
  Transmission Date: 20171127
  Serious: Yes (Other)
  Sender: FDA-Public Use
  Company Number: GB-LANNETT COMPANY, INC.-GB-2017LAN000906

PATIENT
  Age: 19 Year
  Sex: Male

DRUGS (1)
  1. SUMATRIPTAN. [Suspect]
     Active Substance: SUMATRIPTAN
     Indication: MIGRAINE
     Dosage: 50 MG, SINGLE
     Route: 048

REACTIONS (1)
  - IIIrd nerve paresis [Recovered/Resolved]
